FAERS Safety Report 20026307 (Version 1)
Quarter: 2021Q4

REPORT INFORMATION
  Report Type: Other
  Country: LT (occurrence: LT)
  Receive Date: 20211102
  Receipt Date: 20211102
  Transmission Date: 20220303
  Serious: Yes (Hospitalization, Other)
  Sender: FDA-Public Use
  Company Number: None

PATIENT
  Age: 23 Year
  Sex: Female

DRUGS (9)
  1. PAROXETINE [Suspect]
     Active Substance: PAROXETINE
     Indication: Anorexia nervosa
     Dosage: 20 MILLIGRAM;PATIENT INGESTED 15 TABLETS OF MIRTAZAPIN,18 TABLETS OF PAROXETIN,2 TABLETS OF DIAZEPAM
     Route: 048
     Dates: start: 20210925, end: 20210925
  2. PAROXETINE [Suspect]
     Active Substance: PAROXETINE
     Indication: Anxiety disorder
  3. PAROXETINE [Suspect]
     Active Substance: PAROXETINE
     Indication: Depression
  4. DIAZEPAM [Suspect]
     Active Substance: DIAZEPAM
     Indication: Anorexia nervosa
     Dosage: 5 MILLIGRAM;PATIENT INGESTED 15 TABLETS OF MIRTAZAPIN,18 TABLETS OF PAROXETIN,2 TABLETS OF DIAZEPAM
     Route: 048
     Dates: start: 20210925, end: 20210925
  5. DIAZEPAM [Suspect]
     Active Substance: DIAZEPAM
     Indication: Anxiety disorder
  6. DIAZEPAM [Suspect]
     Active Substance: DIAZEPAM
     Indication: Depression
  7. MIRTAZAPINE [Suspect]
     Active Substance: MIRTAZAPINE
     Indication: Anxiety disorder
     Dosage: 30 MILLIGRAM;PATIENT INGESTED 15 TABLETS OF MIRTAZAPIN,18 TABLETS OF PAROXETIN,2 TABLETS OF DIAZEPAM
     Route: 048
     Dates: start: 20210925, end: 20210925
  8. MIRTAZAPINE [Suspect]
     Active Substance: MIRTAZAPINE
     Indication: Anorexia nervosa
  9. MIRTAZAPINE [Suspect]
     Active Substance: MIRTAZAPINE
     Indication: Depression

REACTIONS (5)
  - Suicide attempt [Recovered/Resolved]
  - Intentional overdose [Recovered/Resolved]
  - Tremor [Recovered/Resolved]
  - Asthenia [Recovered/Resolved]
  - Somnolence [Recovered/Resolved]

NARRATIVE: CASE EVENT DATE: 20210925
